FAERS Safety Report 4867337-3 (Version None)
Quarter: 2005Q4

REPORT INFORMATION
  Report Type: 
  Country: None (occurrence: None)
  Receive Date: 20051223
  Receipt Date: 20051223
  Transmission Date: 20060501
  Serious: Yes (Hospitalization)
  Sender: FDA-Public Use
  Company Number: None

PATIENT
  Sex: Male
  Weight: 69.8539 kg

DRUGS (2)
  1. CARVEDILOL [Suspect]
     Indication: CLUSTER HEADACHE
     Dosage: 1 TAB  QD FOR 7 DAYS, THEN   PO
     Route: 048
     Dates: start: 20050928, end: 20051023
  2. CARVEDILOL [Suspect]
     Dosage: 1 TAB   BID  PO
     Route: 048

REACTIONS (4)
  - ATRIAL FIBRILLATION [None]
  - ATRIAL FLUTTER [None]
  - BRADYCARDIA [None]
  - DIZZINESS [None]
